FAERS Safety Report 10933831 (Version 3)
Quarter: 2015Q2

REPORT INFORMATION
  Report Type: Report from Study
  Country: VE (occurrence: VE)
  Receive Date: 20150320
  Receipt Date: 20150414
  Transmission Date: 20150821
  Serious: Yes (Other)
  Sender: FDA-Public Use
  Company Number: VE-ABBVIE-15K-178-1363057-00

PATIENT
  Age: 58 Year
  Sex: Female
  Weight: 85 kg

DRUGS (2)
  1. HUMIRA [Suspect]
     Active Substance: ADALIMUMAB
     Indication: RHEUMATOID ARTHRITIS
     Route: 058
     Dates: start: 20140425, end: 201406
  2. RIFADIN [Concomitant]
     Active Substance: RIFAMPIN
     Indication: SURGERY

REACTIONS (2)
  - Bacterial infection [Recovering/Resolving]
  - Foot deformity [Recovered/Resolved]

NARRATIVE: CASE EVENT DATE: 201407
